FAERS Safety Report 14897124 (Version 2)
Quarter: 2018Q2

REPORT INFORMATION
  Report Type: Spontaneous
  Country: DE (occurrence: DE)
  Receive Date: 20180515
  Receipt Date: 20180517
  Transmission Date: 20180711
  Serious: Yes (Death, Hospitalization, Other)
  Sender: FDA-Public Use
  Company Number: DE-SA-2018SA135147

PATIENT
  Sex: Female
  Weight: 69 kg

DRUGS (34)
  1. AMARYL [Suspect]
     Active Substance: GLIMEPIRIDE
     Indication: DIABETES MELLITUS
     Route: 048
     Dates: start: 20010616, end: 20010703
  2. PERENTEROL [Suspect]
     Active Substance: SACCHAROMYCES CEREVISIAE
     Indication: DIARRHOEA
     Route: 048
     Dates: start: 20010711, end: 20010714
  3. RAMIPRIL. [Suspect]
     Active Substance: RAMIPRIL
     Indication: CORONARY ARTERY DISEASE
     Route: 048
     Dates: start: 20010616, end: 20010714
  4. METFORMIN HYDROCHLORIDE. [Suspect]
     Active Substance: METFORMIN HYDROCHLORIDE
     Indication: DIABETES MELLITUS
     Route: 048
     Dates: start: 20010616, end: 20010714
  5. PREDNISOLONE. [Suspect]
     Active Substance: PREDNISOLONE
     Indication: DYSPNOEA
     Route: 042
     Dates: start: 20010703, end: 20010703
  6. ROCEPHIN [Suspect]
     Active Substance: CEFTRIAXONE SODIUM
     Indication: PYREXIA
     Route: 042
     Dates: start: 20010629, end: 20010703
  7. PANTOZOL [Suspect]
     Active Substance: PANTOPRAZOLE SODIUM
     Indication: PROPHYLAXIS
     Route: 048
     Dates: start: 20010616, end: 20010714
  8. AMPHOTERICIN B. [Suspect]
     Active Substance: AMPHOTERICIN B
     Indication: ANTIFUNGAL PROPHYLAXIS
     Route: 048
     Dates: start: 20010703, end: 20010714
  9. BROMAZEPAM [Concomitant]
     Active Substance: BROMAZEPAM
     Indication: RESTLESSNESS
     Route: 048
     Dates: start: 20010713, end: 20010714
  10. LASIX [Suspect]
     Active Substance: FUROSEMIDE
     Indication: HYPERTENSION
     Dosage: DOSE RANGED FROM 80 MG-120 MG DAILY,
     Route: 042
     Dates: start: 20010703, end: 20010714
  11. ASPIRIN. [Suspect]
     Active Substance: ASPIRIN
     Indication: CORONARY ARTERY DISEASE
     Route: 048
     Dates: start: 20010616, end: 20010714
  12. CONCOR [Suspect]
     Active Substance: BISOPROLOL FUMARATE
     Indication: CORONARY ARTERY DISEASE
     Route: 048
     Dates: start: 20010616, end: 20010714
  13. PARACETAMOL [Suspect]
     Active Substance: ACETAMINOPHEN
     Indication: PAIN
     Route: 048
     Dates: start: 20010711, end: 20010711
  14. HALDOL [Concomitant]
     Active Substance: HALOPERIDOL
     Indication: RESTLESSNESS
     Route: 048
     Dates: start: 20010713, end: 20010714
  15. MOLSIDOMINE [Suspect]
     Active Substance: MOLSIDOMINE
     Indication: CORONARY ARTERY DISEASE
     Route: 048
  16. PANTOZOL [Suspect]
     Active Substance: PANTOPRAZOLE SODIUM
     Indication: PROPHYLAXIS
     Route: 048
  17. NORVASC [Suspect]
     Active Substance: AMLODIPINE BESYLATE
     Indication: CORONARY ARTERY DISEASE
     Route: 048
     Dates: start: 20010703, end: 20010714
  18. FRAGMIN [Suspect]
     Active Substance: DALTEPARIN SODIUM
     Indication: THROMBOSIS PROPHYLAXIS
     Route: 058
     Dates: start: 20010703, end: 20010714
  19. ISOSORBIDE MONONITRATE. [Suspect]
     Active Substance: ISOSORBIDE MONONITRATE
     Indication: CORONARY ARTERY DISEASE
     Route: 048
     Dates: start: 20010703, end: 20010714
  20. PLAVIX [Suspect]
     Active Substance: CLOPIDOGREL BISULFATE
     Indication: CORONARY ARTERY DISEASE
     Route: 048
     Dates: start: 20010704, end: 20010714
  21. MOLSIDOMINE [Suspect]
     Active Substance: MOLSIDOMINE
     Indication: CORONARY ARTERY DISEASE
     Route: 048
     Dates: start: 20010703, end: 20010714
  22. DIPOTASSIUM CLORAZEPATE [Suspect]
     Active Substance: CLORAZEPATE DIPOTASSIUM
     Indication: RESTLESSNESS
     Route: 048
     Dates: start: 20010710, end: 20010714
  23. LANTUS [Suspect]
     Active Substance: INSULIN GLARGINE
     Indication: DIABETES MELLITUS
     Route: 058
     Dates: start: 20010616, end: 20010629
  24. ZAROXOLYN [Suspect]
     Active Substance: METOLAZONE
     Indication: HYPERTENSION
     Route: 048
     Dates: start: 20010712, end: 20010713
  25. DIGOXIN. [Suspect]
     Active Substance: DIGOXIN
     Indication: CORONARY ARTERY DISEASE
     Route: 048
     Dates: start: 20010703, end: 20010714
  26. SORTIS [Suspect]
     Active Substance: ATORVASTATIN
     Indication: HYPERLIPIDAEMIA
     Route: 048
     Dates: start: 20010616, end: 20010703
  27. IRENAT [Suspect]
     Active Substance: SODIUM PERCHLORATE
     Indication: HYPERTHYROIDISM
     Dosage: 1376.8 MG TO 2065.2 MG
     Route: 048
     Dates: start: 20010618, end: 20010714
  28. CAPTOPRIL. [Suspect]
     Active Substance: CAPTOPRIL
     Indication: CORONARY ARTERY DISEASE
     Route: 048
     Dates: start: 20010616, end: 20010714
  29. CIPROFLOXACIN HYDROCHLORIDE. [Suspect]
     Active Substance: CIPROFLOXACIN HYDROCHLORIDE
     Indication: CHOLECYSTITIS
     Route: 048
     Dates: start: 20010620, end: 20010628
  30. CARBIMAZOLE [Suspect]
     Active Substance: CARBIMAZOLE
     Indication: HYPERTHYROIDISM
     Dosage: DOSE RANGED FROM 20-30 MG DAILY
     Route: 048
     Dates: start: 20010621, end: 20010714
  31. CIPROFLOXACIN HYDROCHLORIDE. [Suspect]
     Active Substance: CIPROFLOXACIN HYDROCHLORIDE
     Indication: PRODUCT USED FOR UNKNOWN INDICATION
     Route: 048
     Dates: start: 20010710, end: 20010711
  32. DIAZEPAM. [Suspect]
     Active Substance: DIAZEPAM
     Indication: RESTLESSNESS
     Route: 048
     Dates: start: 20010616, end: 20010703
  33. METOCLOPRAMIDE HYDROCHLORIDE. [Suspect]
     Active Substance: METOCLOPRAMIDE HYDROCHLORIDE
     Indication: NAUSEA
     Route: 048
     Dates: start: 20010704, end: 20010712
  34. EUNERPAN [Suspect]
     Active Substance: MELPERONE HYDROCHLORIDE
     Indication: RESTLESSNESS
     Dosage: DOSE RANGED FROM 80-105 MG DAILY
     Route: 048
     Dates: start: 20010706, end: 20010712

REACTIONS (9)
  - Electrolyte imbalance [Fatal]
  - Hyperthyroidism [Fatal]
  - Diarrhoea [Fatal]
  - Cholecystitis [Fatal]
  - Multiple organ dysfunction syndrome [Fatal]
  - Condition aggravated [Fatal]
  - Nausea [Fatal]
  - Restlessness [Fatal]
  - Toxic epidermal necrolysis [Fatal]

NARRATIVE: CASE EVENT DATE: 20010704
